FAERS Safety Report 21600608 (Version 1)
Quarter: 2022Q4

REPORT INFORMATION
  Report Type: Spontaneous
  Country: DE (occurrence: DE)
  Receive Date: 20221116
  Receipt Date: 20221116
  Transmission Date: 20230113
  Serious: Yes (Hospitalization, Other)
  Sender: FDA-Public Use
  Company Number: DE-GLENMARK PHARMACEUTICALS-2022GMK072687

PATIENT
  Age: 60 Year
  Sex: Female

DRUGS (2)
  1. OLANZAPINE [Suspect]
     Active Substance: OLANZAPINE
     Indication: Schizophrenia
     Dosage: 1 DOSAGE FORM, QD
     Route: 048
     Dates: start: 2003, end: 202201
  2. PAROXETINE [Concomitant]
     Active Substance: PAROXETINE
     Indication: Anxiety
     Dosage: UNK
     Route: 065

REACTIONS (15)
  - Cholecystitis [Recovered/Resolved]
  - Weight decreased [Recovered/Resolved]
  - Nervous system disorder [Not Recovered/Not Resolved]
  - Stomatitis [Not Recovered/Not Resolved]
  - Biliary cyst [Recovered/Resolved]
  - Neuralgia [Unknown]
  - Withdrawal syndrome [Not Recovered/Not Resolved]
  - Neuritis [Not Recovered/Not Resolved]
  - Malaise [Not Recovered/Not Resolved]
  - Anal inflammation [Not Recovered/Not Resolved]
  - Nerve injury [Unknown]
  - Vomiting [Not Recovered/Not Resolved]
  - Pain [Not Recovered/Not Resolved]
  - Nausea [Not Recovered/Not Resolved]
  - Asthenia [Not Recovered/Not Resolved]

NARRATIVE: CASE EVENT DATE: 20210101
